FAERS Safety Report 13185630 (Version 2)
Quarter: 2017Q1

REPORT INFORMATION
  Report Type: Spontaneous
  Country: AT (occurrence: AT)
  Receive Date: 20170203
  Receipt Date: 20170223
  Transmission Date: 20170428
  Serious: Yes (Death, Hospitalization, Other)
  Sender: FDA-Public Use
  Company Number: AT-GILEAD-2017-0256330

PATIENT
  Age: 56 Year
  Sex: Male
  Weight: 88 kg

DRUGS (4)
  1. LIDAPRIM                           /00525601/ [Concomitant]
     Active Substance: SULFAMETROLE\TRIMETHOPRIM
     Indication: ANTIFUNGAL PROPHYLAXIS
     Dosage: UNK
     Dates: start: 201611, end: 201701
  2. OBINUTUZUMAB [Concomitant]
     Active Substance: OBINUTUZUMAB
  3. ZYDELIG [Suspect]
     Active Substance: IDELALISIB
     Indication: B-CELL LYMPHOMA
     Dosage: UNK
     Route: 065
     Dates: start: 201611
  4. RITUXIMAB [Concomitant]
     Active Substance: RITUXIMAB

REACTIONS (1)
  - Progressive multifocal leukoencephalopathy [Fatal]

NARRATIVE: CASE EVENT DATE: 20170103
